FAERS Safety Report 19849216 (Version 2)
Quarter: 2021Q3

REPORT INFORMATION
  Report Type: Other
  Country: CO (occurrence: CO)
  Receive Date: 20210918
  Receipt Date: 20210927
  Transmission Date: 20211014
  Serious: Yes (Other)
  Sender: FDA-Public Use
  Company Number: CO-ROCHE-2888013

PATIENT
  Age: 66 Year
  Sex: Female

DRUGS (5)
  1. CARVEDILOL. [Concomitant]
     Active Substance: CARVEDILOL
     Indication: HYPERTENSION
     Dosage: UNK, QD (STARTED 35 YEARS AGO)
  2. INSULIN [Concomitant]
     Active Substance: INSULIN NOS
     Indication: DIABETES MELLITUS
     Dosage: UNK, Q24H (STARTED 6 YEARS AGO)
     Route: 058
  3. XOLAIR [Suspect]
     Active Substance: OMALIZUMAB
     Indication: ASTHMA
     Route: 058
     Dates: start: 2012
  4. XOLAIR [Suspect]
     Active Substance: OMALIZUMAB
     Route: 058
     Dates: start: 2019
  5. HYDROCHLOROTHIAZIDE. [Concomitant]
     Active Substance: HYDROCHLOROTHIAZIDE
     Indication: DIURETIC THERAPY
     Dosage: UNK, QD (STARTED 30 YEARS AGO)
     Route: 048

REACTIONS (8)
  - Asthmatic crisis [Unknown]
  - Spinal deformity [Unknown]
  - Painful respiration [Unknown]
  - Memory impairment [Unknown]
  - Gait inability [Unknown]
  - Choking [Unknown]
  - Asphyxia [Unknown]
  - Weight increased [Unknown]
